FAERS Safety Report 9376728 (Version 1)
Quarter: 2013Q3

REPORT INFORMATION
  Report Type: Spontaneous
  Country: US (occurrence: US)
  Receive Date: 20130701
  Receipt Date: 20130701
  Transmission Date: 20140515
  Serious: Yes (Hospitalization)
  Sender: FDA-Public Use
  Company Number: US-SANOFI-AVENTIS-2013SA064429

PATIENT
  Age: 22 Year
  Sex: Male

DRUGS (2)
  1. LANTUS [Suspect]
     Indication: PRODUCT USED FOR UNKNOWN INDICATION
     Dosage: DOSE:54 UNIT(S)
  2. NOVOLOG [Suspect]

REACTIONS (4)
  - Diabetic ketoacidosis [Unknown]
  - Dehydration [Recovered/Resolved]
  - Vomiting [Recovered/Resolved]
  - Blood glucose abnormal [Recovered/Resolved]
